FAERS Safety Report 19990939 (Version 1)
Quarter: 2021Q4

REPORT INFORMATION
  Report Type: Spontaneous
  Country: US (occurrence: US)
  Receive Date: 20211025
  Receipt Date: 20211025
  Transmission Date: 20220303
  Serious: Yes (Hospitalization, Disabling)
  Sender: FDA-Public Use
  Company Number: None

PATIENT
  Age: 55 Year
  Sex: Female
  Weight: 60.75 kg

DRUGS (1)
  1. CIPROFLOXACIN [Suspect]
     Active Substance: CIPROFLOXACIN
     Indication: Urinary tract infection
     Dosage: ?          QUANTITY:1 TABLET(S);
     Route: 048

REACTIONS (7)
  - Neuralgia [None]
  - Muscular weakness [None]
  - Psychotic disorder [None]
  - Insomnia [None]
  - Tendon disorder [None]
  - Nervous system disorder [None]
  - Dyskinesia [None]

NARRATIVE: CASE EVENT DATE: 20190408
